FAERS Safety Report 10402225 (Version 4)
Quarter: 2014Q4

REPORT INFORMATION
  Report Type: Spontaneous
  Country: US (occurrence: US)
  Receive Date: 20140822
  Receipt Date: 20141121
  Transmission Date: 20150528
  Serious: No
  Sender: FDA-Public Use
  Company Number: US-PFIZER INC-2014233833

PATIENT
  Age: 64 Year
  Sex: Male
  Weight: 63.49 kg

DRUGS (5)
  1. CHOLEST-OFF [Concomitant]
     Dosage: UNK
  2. HYDROCODONE/APAP C III [Concomitant]
     Dosage: UNK
  3. BENAZEPRIL [Concomitant]
     Active Substance: BENAZEPRIL\BENAZEPRIL HYDROCHLORIDE
     Indication: HYPERTENSION
     Dosage: 5 MG, UNK
  4. SUTENT [Suspect]
     Active Substance: SUNITINIB MALATE
     Indication: RENAL CANCER METASTATIC
     Dosage: 50 MG, 1X/DAY
     Route: 048
     Dates: start: 201407
  5. PRAVASTATIN [Concomitant]
     Active Substance: PRAVASTATIN\PRAVASTATIN SODIUM
     Indication: BLOOD CHOLESTEROL INCREASED
     Dosage: 40 MG, UNK

REACTIONS (14)
  - Dysgeusia [Recovering/Resolving]
  - Gingival pain [Unknown]
  - Ageusia [Unknown]
  - Vomiting [Unknown]
  - Disease progression [Unknown]
  - Nausea [Unknown]
  - Glossodynia [Unknown]
  - Burning sensation [Unknown]
  - Pain [Unknown]
  - Food intolerance [Unknown]
  - Renal cancer metastatic [Unknown]
  - Platelet count decreased [Unknown]
  - Fatigue [Unknown]
  - Lethargy [Unknown]

NARRATIVE: CASE EVENT DATE: 2014
